FAERS Safety Report 9511321 (Version 1)
Quarter: 2013Q3

REPORT INFORMATION
  Report Type: Spontaneous
  Country: US (occurrence: None)
  Receive Date: 20130906
  Receipt Date: 20130906
  Transmission Date: 20140515
  Serious: Yes (Other)
  Sender: FDA-Public Use
  Company Number: US-ZYDUS-002129

PATIENT
  Sex: Female

DRUGS (1)
  1. AZATHIOPRINE [Suspect]

REACTIONS (2)
  - Aplastic anaemia [None]
  - Bone marrow toxicity [None]
